FAERS Safety Report 20696286 (Version 1)
Quarter: 2022Q2

REPORT INFORMATION
  Report Type: Spontaneous
  Country: US (occurrence: None)
  Receive Date: 20220409
  Receipt Date: 20220409
  Transmission Date: 20220721
  Serious: Yes (Hospitalization)
  Sender: FDA-Public Use
  Company Number: None

PATIENT
  Age: 64 Year
  Sex: Male
  Weight: 66.23 kg

DRUGS (2)
  1. CYTARABINE [Suspect]
     Active Substance: CYTARABINE
     Dates: end: 20220323
  2. DASATINIB [Suspect]
     Active Substance: DASATINIB
     Dates: end: 20220329

REACTIONS (4)
  - Pyrexia [None]
  - White blood cell count decreased [None]
  - Protein urine present [None]
  - Urine ketone body present [None]

NARRATIVE: CASE EVENT DATE: 20220408
